FAERS Safety Report 7552268-0 (Version None)
Quarter: 2011Q2

REPORT INFORMATION
  Report Type: 
  Country: None (occurrence: None)
  Receive Date: 20110616
  Receipt Date: 20040206
  Transmission Date: 20111010
  Serious: Yes (Hospitalization)
  Sender: FDA-Public Use
  Company Number: PHHO2004NL02157

PATIENT
  Age: 77 Year
  Sex: Male

DRUGS (6)
  1. SYMBICORT [Concomitant]
     Dosage: UNKNOWN
  2. SPIRIVA [Concomitant]
     Dosage: UNKNOWN
  3. DIOVAN [Suspect]
     Dosage: 80 MG, UNK
  4. DIOVAN [Suspect]
     Indication: HYPERTENSION
     Dosage: 80 MG, UNK
     Dates: start: 20020828
  5. DIOVAN [Suspect]
     Dosage: 180 MG, UNK
     Dates: end: 20030415
  6. MARCOUMAR [Concomitant]
     Dosage: UNKNOWN

REACTIONS (1)
  - CHRONIC OBSTRUCTIVE PULMONARY DISEASE [None]
